FAERS Safety Report 13071932 (Version 1)
Quarter: 2016Q4

REPORT INFORMATION
  Report Type: Spontaneous
  Country: US (occurrence: US)
  Receive Date: 20161228
  Receipt Date: 20161228
  Transmission Date: 20170207
  Serious: Yes (Hospitalization)
  Sender: FDA-Public Use
  Company Number: None

PATIENT
  Age: 55 Year
  Sex: Female
  Weight: 69.3 kg

DRUGS (6)
  1. CIPRO [Suspect]
     Active Substance: CIPROFLOXACIN HYDROCHLORIDE
     Indication: URINARY TRACT INFECTION
     Route: 048
     Dates: start: 20161024, end: 20161029
  2. LISINOPRIL. [Concomitant]
     Active Substance: LISINOPRIL
  3. MULTIVITAMIN [Concomitant]
     Active Substance: VITAMINS
  4. CIPRO [Suspect]
     Active Substance: CIPROFLOXACIN HYDROCHLORIDE
  5. OLANZAPINE. [Concomitant]
     Active Substance: OLANZAPINE
  6. VALPROIC ACID. [Concomitant]
     Active Substance: VALPROIC ACID

REACTIONS (5)
  - Dermatitis allergic [None]
  - Drug reaction with eosinophilia and systemic symptoms [None]
  - Leukocytosis [None]
  - Hyperlipidaemia [None]
  - Hepatic enzyme abnormal [None]

NARRATIVE: CASE EVENT DATE: 20161029
